FAERS Safety Report 16855783 (Version 3)
Quarter: 2020Q1

REPORT INFORMATION
  Report Type: Report from Study
  Country: BR (occurrence: BR)
  Receive Date: 20190926
  Receipt Date: 20200102
  Transmission Date: 20200409
  Serious: Yes (Other)
  Sender: FDA-Public Use
  Company Number: PHHY2019BR115704

PATIENT
  Age: 54 Year
  Sex: Male
  Weight: 91 kg

DRUGS (7)
  1. COSENTYX [Suspect]
     Active Substance: SECUKINUMAB
     Indication: PSORIATIC ARTHROPATHY
     Dosage: 300 MG, UNK
     Route: 065
     Dates: start: 20171227
  2. COSENTYX [Suspect]
     Active Substance: SECUKINUMAB
     Dosage: UNK
     Route: 065
     Dates: start: 20190922
  3. ATENOLOLO [Concomitant]
     Active Substance: ATENOLOL
     Indication: PRODUCT USED FOR UNKNOWN INDICATION
     Dosage: UNK
     Route: 065
     Dates: start: 2015
  4. SYNTRAN [Concomitant]
     Indication: THYROID DISORDER
     Dosage: UNK, QD
     Route: 048
     Dates: start: 2012
  5. COSENTYX [Suspect]
     Active Substance: SECUKINUMAB
     Dosage: UNK
     Route: 065
  6. COSENTYX [Suspect]
     Active Substance: SECUKINUMAB
     Dosage: UNK
     Route: 065
     Dates: start: 20191026
  7. SERTRALIN [Concomitant]
     Active Substance: SERTRALINE HYDROCHLORIDE
     Indication: ANXIETY
     Dosage: UNK, QD
     Route: 048
     Dates: start: 2010

REACTIONS (7)
  - Tuberculosis [Not Recovered/Not Resolved]
  - Decreased immune responsiveness [Not Recovered/Not Resolved]
  - Skin lesion [Unknown]
  - Skin disorder [Unknown]
  - Pain [Unknown]
  - Skin wound [Unknown]
  - Psoriasis [Unknown]

NARRATIVE: CASE EVENT DATE: 201904
